FAERS Safety Report 4936443-7 (Version None)
Quarter: 2006Q1

REPORT INFORMATION
  Report Type: 
  Country: None (occurrence: None)
  Receive Date: 20060302
  Receipt Date: 20060217
  Transmission Date: 20060701
  Serious: Yes (Other)
  Sender: FDA-Public Use
  Company Number: 2005088274

PATIENT
  Age: 70 Year
  Sex: Male
  Weight: 80.7403 kg

DRUGS (3)
  1. BEXTRA [Suspect]
     Indication: ILL-DEFINED DISORDER
     Dosage: 20 MG (10 MG, 2 IN 1 D), ORAL
     Route: 048
  2. CELEBREX [Suspect]
     Indication: PAIN
  3. ASPIRIN [Concomitant]

REACTIONS (7)
  - BACK PAIN [None]
  - CHEST PAIN [None]
  - GASTRIC DISORDER [None]
  - GASTRIC ULCER [None]
  - GASTROOESOPHAGEAL REFLUX DISEASE [None]
  - PLEURISY [None]
  - RASH [None]
